FAERS Safety Report 7775057-0 (Version None)
Quarter: 2011Q3

REPORT INFORMATION
  Report Type: 
  Country: None (occurrence: None)
  Receive Date: 20110923
  Receipt Date: 20110914
  Transmission Date: 20111222
  Serious: Yes (Hospitalization)
  Sender: FDA-Public Use
  Company Number: CA-JNJFOC-20110906867

PATIENT
  Sex: Female
  Weight: 56.7 kg

DRUGS (6)
  1. IRON INFUSION [Suspect]
     Indication: PRODUCT USED FOR UNKNOWN INDICATION
     Route: 065
  2. ASCORBIC ACID [Concomitant]
     Route: 065
  3. TECTA [Concomitant]
     Route: 065
  4. FERROUS SULFATE TAB [Concomitant]
     Dosage: DAILY
     Route: 065
  5. REMICADE [Suspect]
     Indication: CROHN'S DISEASE
     Dosage: 100MG/ML
     Route: 042
     Dates: start: 20080801
  6. MULTI-VITAMINS [Concomitant]
     Route: 065

REACTIONS (9)
  - ASTHENIA [None]
  - VOMITING [None]
  - HEART RATE INCREASED [None]
  - HYPERHIDROSIS [None]
  - BLOOD POTASSIUM DECREASED [None]
  - BLOOD URINE PRESENT [None]
  - SWOLLEN TONGUE [None]
  - SYNCOPE [None]
  - OEDEMA PERIPHERAL [None]
